FAERS Safety Report 4866724-7 (Version None)
Quarter: 2005Q4

REPORT INFORMATION
  Report Type: 
  Country: None (occurrence: None)
  Receive Date: 20051221
  Receipt Date: 20051212
  Transmission Date: 20060501
  Serious: Yes (Other)
  Sender: FDA-Public Use
  Company Number: 2005-12-0523

PATIENT
  Age: 28 Year
  Sex: Male

DRUGS (5)
  1. INTERFERON ALFA [Suspect]
     Indication: HEPATITIS C
     Dosage: 6-3 MIU TIW
     Dates: start: 20010201, end: 20010101
  2. INTERFERON ALFA [Suspect]
     Indication: HEPATITIS C
     Dosage: 6-3 MIU TIW
     Dates: start: 20010201, end: 20010101
  3. INTERFERON ALFA [Suspect]
     Indication: HEPATITIS C
     Dosage: 6-3 MIU TIW
     Dates: start: 20010701, end: 20010101
  4. INTERFERON ALFA [Suspect]
     Indication: HEPATITIS C
     Dosage: 6-3 MIU TIW
     Dates: start: 20010201, end: 20010701
  5. RIBAVIRIN [Suspect]
     Indication: HEPATITIS C
     Dosage: 1000-400 MG
     Dates: start: 20010201, end: 20010101

REACTIONS (6)
  - ASTHENIA [None]
  - COLITIS ULCERATIVE [None]
  - DECREASED APPETITE [None]
  - DISEASE RECURRENCE [None]
  - HEPATITIS C [None]
  - WEIGHT DECREASED [None]
